FAERS Safety Report 10362192 (Version 1)
Quarter: 2014Q1

REPORT INFORMATION
  Report Type: Spontaneous
  Country: US (occurrence: None)
  Receive Date: 20140306
  Receipt Date: 20140306
  Transmission Date: 20141002
  Serious: Yes (Other)
  Sender: FDA-Public Use
  Company Number: 163-21880-13083924

PATIENT
  Age: 55 Year
  Sex: Male
  Weight: 85.28 kg

DRUGS (6)
  1. REVLIMID (LENALIDOMIDE) (25 MILLIGRAM, CAPSULES) [Suspect]
     Indication: PLASMA CELL MYELOMA
     Dosage: 25 MG , 21 IN 21 D, PIO 08/01/2013 - 08/2013 THERAPY DATES
     Route: 048
     Dates: start: 20130801, end: 201308
  2. VELCADE (BORTEZOMIB) [Concomitant]
  3. DECADRON (DEXAMETHASONE) [Concomitant]
  4. ATENOLOL [Concomitant]
  5. GLYBURIDE (GLIBENICLAMIDE) [Concomitant]
  6. CITALOPRAM [Concomitant]

REACTIONS (2)
  - Liver function test abnormal [None]
  - Limb discomfort [None]
